FAERS Safety Report 12838873 (Version 1)
Quarter: 2016Q4

REPORT INFORMATION
  Report Type: Spontaneous
  Country: US (occurrence: US)
  Receive Date: 20161010
  Receipt Date: 20161010
  Transmission Date: 20170207
  Serious: Yes (Other)
  Sender: FDA-Public Use
  Company Number: None

PATIENT
  Age: 48 Year
  Sex: Female
  Weight: 66.6 kg

DRUGS (6)
  1. BUPROPION HCL 150MG XL [Suspect]
     Active Substance: BUPROPION HYDROCHLORIDE
     Indication: SMOKING CESSATION THERAPY
     Dosage: ?          QUANTITY:1 TABLET(S);?
     Route: 048
     Dates: start: 20160922, end: 20160930
  2. BIOTIN [Concomitant]
     Active Substance: BIOTIN
  3. CALCIUM [Concomitant]
     Active Substance: CALCIUM
  4. FISH OIL [Concomitant]
     Active Substance: FISH OIL
  5. VITAMIN D [Concomitant]
     Active Substance: CHOLECALCIFEROL
  6. BUPROPION HCL 150MG XL [Suspect]
     Active Substance: BUPROPION HYDROCHLORIDE
     Indication: ANXIETY
     Dosage: ?          QUANTITY:1 TABLET(S);?
     Route: 048
     Dates: start: 20160922, end: 20160930

REACTIONS (16)
  - Insomnia [None]
  - Tremor [None]
  - Visual impairment [None]
  - Hyperhidrosis [None]
  - Dizziness [None]
  - Decreased appetite [None]
  - Headache [None]
  - Thinking abnormal [None]
  - Eye irritation [None]
  - Restlessness [None]
  - Dry mouth [None]
  - Ocular hyperaemia [None]
  - Nervousness [None]
  - Anxiety [None]
  - Agitation [None]
  - Pollakiuria [None]

NARRATIVE: CASE EVENT DATE: 20161001
